FAERS Safety Report 22100464 (Version 1)
Quarter: 2023Q1

REPORT INFORMATION
  Report Type: Report from Study
  Country: US (occurrence: US)
  Receive Date: 20230316
  Receipt Date: 20230316
  Transmission Date: 20230417
  Serious: Yes (Other)
  Sender: FDA-Public Use
  Company Number: US-ABBVIE-4341406

PATIENT
  Age: 50 Year
  Sex: Female

DRUGS (1)
  1. SKYRIZI [Suspect]
     Active Substance: RISANKIZUMAB-RZAA
     Indication: Psoriasis
     Route: 058
     Dates: start: 20220406

REACTIONS (9)
  - Hip fracture [Recovered/Resolved with Sequelae]
  - Arthralgia [Unknown]
  - Gastrooesophageal reflux disease [Unknown]
  - Upper limb fracture [Recovered/Resolved with Sequelae]
  - Pelvic fracture [Recovered/Resolved with Sequelae]
  - Pruritus [Recovering/Resolving]
  - Fall [Unknown]
  - Sciatica [Unknown]
  - Back injury [Unknown]

NARRATIVE: CASE EVENT DATE: 20130315
